FAERS Safety Report 4869439-4 (Version None)
Quarter: 2005Q4

REPORT INFORMATION
  Report Type: 
  Country: None (occurrence: None)
  Receive Date: 20051230
  Receipt Date: 20050926
  Transmission Date: 20060501
  Serious: Yes (Hospitalization)
  Sender: FDA-Public Use
  Company Number: US-MERCK-0509USA04155

PATIENT
  Age: 78 Year
  Sex: Male
  Weight: 95 kg

DRUGS (15)
  1. VIOXX [Suspect]
     Indication: ARTHRITIS
     Route: 048
     Dates: start: 20020528, end: 20040816
  2. VIOXX [Suspect]
     Indication: PAIN
     Route: 048
     Dates: start: 20020528, end: 20040816
  3. INDAPAMIDE [Concomitant]
     Indication: HYPERTENSION
     Route: 065
     Dates: start: 19960101
  4. LORAZEPAM [Concomitant]
     Route: 065
  5. [THERAPY UNSPECIFIED] [Concomitant]
     Indication: PROSTATIC DISORDER
     Route: 065
  6. NASONEX [Concomitant]
     Route: 065
  7. TRIAMCINOLONE [Concomitant]
     Indication: ASTHMA
     Route: 065
  8. TRIMOX [Concomitant]
     Indication: INFECTION
     Route: 065
  9. SULFAMETHOXAZOLE AND TRIMETHOPRIM [Concomitant]
     Indication: INFECTION
     Route: 065
  10. SULFAMETHOXAZOLE [Concomitant]
     Indication: INFECTION
     Route: 065
  11. HYTRIN [Concomitant]
     Indication: HYPERTENSION
     Route: 065
     Dates: start: 20020101, end: 20030101
  12. DICLOXACILLIN [Concomitant]
     Indication: BACTERIAL INFECTION
     Route: 065
  13. SKELAXIN [Concomitant]
     Indication: PAIN
     Route: 065
     Dates: start: 20020101
  14. TERAZOSIN HYDROCHLORIDE [Concomitant]
     Indication: HYPERTENSION
     Route: 065
     Dates: start: 20030101
  15. PREVACID [Concomitant]
     Indication: GASTROOESOPHAGEAL REFLUX DISEASE
     Route: 065
     Dates: start: 20020101, end: 20040101

REACTIONS (5)
  - ABDOMINAL PAIN LOWER [None]
  - ARTHROPOD BITE [None]
  - BLOOD CHOLESTEROL INCREASED [None]
  - HYPOKALAEMIA [None]
  - MYOCARDIAL INFARCTION [None]
